FAERS Safety Report 6486147-7 (Version None)
Quarter: 2009Q4

REPORT INFORMATION
  Report Type: 
  Country: None (occurrence: None)
  Receive Date: 20091209
  Receipt Date: 20090721
  Transmission Date: 20100525
  Serious: No
  Sender: FDA-Public Use
  Company Number: US-AMGEN-KDL356784

PATIENT
  Sex: Male

DRUGS (4)
  1. ENBREL [Suspect]
     Indication: PSORIASIS
     Route: 058
     Dates: start: 20071207, end: 20090617
  2. CALCITRIOL [Concomitant]
     Dates: start: 20090715
  3. AMBIEN [Concomitant]
  4. AMLODIPINE BESYLATE [Concomitant]

REACTIONS (7)
  - AXILLARY PAIN [None]
  - CHEST PAIN [None]
  - FATIGUE [None]
  - FEELING ABNORMAL [None]
  - INSOMNIA [None]
  - LYMPHADENOPATHY [None]
  - NASOPHARYNGITIS [None]
